FAERS Safety Report 10172898 (Version 1)
Quarter: 2014Q2

REPORT INFORMATION
  Report Type: Spontaneous
  Country: NO (occurrence: NO)
  Receive Date: 20140515
  Receipt Date: 20140515
  Transmission Date: 20141212
  Serious: Yes (Hospitalization)
  Sender: FDA-Public Use
  Company Number: NO-ACCORD-023510

PATIENT
  Age: 5 Decade
  Sex: Male

DRUGS (13)
  1. MYCOPHENOLIC ACID [Suspect]
     Indication: PRODUCT USED FOR UNKNOWN INDICATION
     Dosage: NOT REPORTED
  2. TACROLIMUS [Suspect]
     Indication: PRODUCT USED FOR UNKNOWN INDICATION
     Dosage: NOT REPORTED
  3. DOXORUBICIN [Suspect]
     Indication: DIFFUSE LARGE B-CELL LYMPHOMA
     Dosage: NOT REPORTED
  4. ANTITHYMOCYTE IMMUNOGLOBULIN [Suspect]
     Indication: TRANSPLANT REJECTION
     Dosage: NOT REPORTED
  5. CYCLOPHOSPHAMIDE/CYCLOPHOSPHAMIDE MONOHYDRATE [Suspect]
     Indication: DIFFUSE LARGE B-CELL LYMPHOMA
     Dosage: NOT REPORTED
  6. RITUXIMAB [Suspect]
     Indication: DIFFUSE LARGE B-CELL LYMPHOMA
     Dosage: NOT REPORTED
  7. PREDNISOLONE [Suspect]
     Indication: DIFFUSE LARGE B-CELL LYMPHOMA
     Dosage: NOT REPORTED
  8. METHYLPREDNISOLONE [Suspect]
     Indication: TRANSPLANT REJECTION
     Dosage: NOT REPORTED
     Route: 042
  9. VINCRISTINE [Suspect]
     Indication: DIFFUSE LARGE B-CELL LYMPHOMA
     Dosage: NOT REPORTED
  10. EMTRICITABINE [Concomitant]
     Indication: HEPATITIS B
     Dosage: NOT REPORTED
  11. ASPIRIN [Concomitant]
     Indication: PRODUCT USED FOR UNKNOWN INDICATION
     Dosage: NOT REPORTED
  12. SULFAMETHOXAZOLE/TRIMETHOPRIM [Concomitant]
     Indication: PROPHYLAXIS
     Dosage: NOT REPORTED
  13. INSULIN [Concomitant]
     Indication: TYPE 1 DIABETES MELLITUS
     Dosage: NOT REPORTED

REACTIONS (4)
  - Strongyloidiasis [Recovered/Resolved]
  - Pulmonary fibrosis [Recovered/Resolved]
  - Hypotension [Recovered/Resolved]
  - Infection reactivation [Recovered/Resolved]
